FAERS Safety Report 12162852 (Version 1)
Quarter: 2016Q1

REPORT INFORMATION
  Report Type: Spontaneous
  Country: US (occurrence: None)
  Receive Date: 20160308
  Receipt Date: 20160308
  Transmission Date: 20160526
  Serious: Yes (Hospitalization, Disabling, Other)
  Sender: FDA-Public Use
  Company Number: None

PATIENT
  Age: 37 Year
  Sex: Female
  Weight: 64.86 kg

DRUGS (10)
  1. PERCOCET [Concomitant]
     Active Substance: ACETAMINOPHEN\OXYCODONE HYDROCHLORIDE
  2. MIDODRINE [Suspect]
     Active Substance: MIDODRINE
     Indication: ORTHOSTATIC HYPOTENSION
     Route: 048
     Dates: start: 20160104, end: 20160130
  3. CLONAZEPAM. [Concomitant]
     Active Substance: CLONAZEPAM
  4. PREGABALIN. [Concomitant]
     Active Substance: PREGABALIN
  5. ONDESTERON [Concomitant]
  6. MIRENA [Concomitant]
     Active Substance: LEVONORGESTREL
  7. MELOXICAM. [Concomitant]
     Active Substance: MELOXICAM
  8. AMBIEN [Concomitant]
     Active Substance: ZOLPIDEM TARTRATE
  9. POLYETHYLENE GLYCOL [Concomitant]
     Active Substance: POLYETHYLENE GLYCOLS
  10. PANTOPRAZOLE [Concomitant]
     Active Substance: PANTOPRAZOLE SODIUM

REACTIONS (7)
  - Left ventricular end-diastolic pressure decreased [None]
  - Hypertension [None]
  - Acute myocardial infarction [None]
  - Myocardial ischaemia [None]
  - Tachycardia [None]
  - Diplopia [None]
  - Acute pulmonary oedema [None]

NARRATIVE: CASE EVENT DATE: 20160130
